FAERS Safety Report 7469802-1 (Version None)
Quarter: 2011Q2

REPORT INFORMATION
  Report Type: 
  Country: None (occurrence: None)
  Receive Date: 20110510
  Receipt Date: 20110502
  Transmission Date: 20111010
  Serious: Yes (Hospitalization)
  Sender: FDA-Public Use
  Company Number: US-US-EMD SERONO, INC.-7057705

PATIENT
  Sex: Female
  Weight: 69 kg

DRUGS (5)
  1. IBUPROFEN [Concomitant]
     Dates: start: 20110101
  2. REBIF [Suspect]
     Indication: MULTIPLE SCLEROSIS
     Route: 058
     Dates: start: 20071211
  3. TOPAMAX [Concomitant]
     Indication: MIGRAINE
  4. IRON PILLS [Concomitant]
     Indication: BLOOD IRON DECREASED
  5. ASPIRIN [Concomitant]
     Dates: end: 20110101

REACTIONS (9)
  - HAEMORRHAGE [None]
  - PAIN [None]
  - CYST [None]
  - FATIGUE [None]
  - BALANCE DISORDER [None]
  - INJECTION SITE HAEMATOMA [None]
  - INJECTION SITE PAIN [None]
  - PELVIC PAIN [None]
  - INCISION SITE INFECTION [None]
